FAERS Safety Report 6139793-4 (Version None)
Quarter: 2009Q2

REPORT INFORMATION
  Report Type: 
  Country: None (occurrence: None)
  Receive Date: 20090401
  Receipt Date: 20090325
  Transmission Date: 20091009
  Serious: No
  Sender: FDA-Public Use
  Company Number: B0559783A

PATIENT
  Sex: Male
  Weight: 28 kg

DRUGS (2)
  1. RELENZA [Suspect]
     Indication: INFLUENZA
     Dosage: 10MG TWICE PER DAY
     Route: 055
     Dates: start: 20090131, end: 20090204
  2. CALONAL [Concomitant]
     Indication: INFLUENZA
     Route: 048

REACTIONS (4)
  - ABNORMAL BEHAVIOUR [None]
  - MUSCULOSKELETAL STIFFNESS [None]
  - SCREAMING [None]
  - VISION BLURRED [None]
